FAERS Safety Report 10227325 (Version 1)
Quarter: 2014Q2

REPORT INFORMATION
  Report Type: Spontaneous
  Country: US (occurrence: US)
  Receive Date: 20140610
  Receipt Date: 20140610
  Transmission Date: 20141212
  Serious: Yes (Other)
  Sender: FDA-Public Use
  Company Number: US-JNJFOC-20140601311

PATIENT
  Age: 61 Year
  Sex: Male
  Weight: 83.92 kg

DRUGS (7)
  1. XARELTO [Suspect]
     Indication: PULMONARY EMBOLISM
     Route: 048
     Dates: start: 20140325, end: 20140529
  2. AMBIEN [Concomitant]
     Indication: SLEEP DISORDER
     Dosage: AT NIGHT
     Route: 048
     Dates: start: 201404
  3. TAMSULOSIN [Concomitant]
     Indication: BLADDER DISORDER
     Route: 048
     Dates: start: 20140530
  4. FINASTERIDE [Concomitant]
     Indication: BLADDER DISORDER
     Route: 048
     Dates: start: 20140530
  5. NITROFURANTOIN [Concomitant]
     Indication: BLADDER DISORDER
     Route: 048
     Dates: start: 20140530
  6. NITROFURANTOIN [Concomitant]
     Indication: ANTIBIOTIC THERAPY
     Route: 048
     Dates: start: 20140530
  7. XANAX [Concomitant]
     Indication: ANXIETY
     Route: 048
     Dates: start: 201404

REACTIONS (4)
  - White blood cell count decreased [Unknown]
  - Thrombosis in device [Unknown]
  - Anxiety [Unknown]
  - Peripheral swelling [Unknown]
